FAERS Safety Report 5423507-7 (Version None)
Quarter: 2007Q3

REPORT INFORMATION
  Report Type: 
  Country: None (occurrence: None)
  Receive Date: 20070823
  Receipt Date: 20070813
  Transmission Date: 20080115
  Serious: Yes (Other)
  Sender: FDA-Public Use
  Company Number: US-PURDUE-USA_2007_0028801

PATIENT
  Age: 48 Year
  Sex: Male

DRUGS (2)
  1. MORPHINE SULFATE [Suspect]
     Indication: PAIN
     Dosage: 900 MG, TID
  2. OXYMORPHONE HYDROCHLORIDE [Concomitant]
     Indication: BREAKTHROUGH PAIN

REACTIONS (3)
  - DEPRESSION [None]
  - PAIN [None]
  - SPINAL OPERATION [None]
